FAERS Safety Report 6286140-3 (Version None)
Quarter: 2009Q3

REPORT INFORMATION
  Report Type: 
  Country: None (occurrence: None)
  Receive Date: 20090728
  Receipt Date: 20090715
  Transmission Date: 20100115
  Serious: Yes (Other)
  Sender: FDA-Public Use
  Company Number: JP-ROCHE-645629

PATIENT
  Age: 52 Year
  Sex: Male

DRUGS (3)
  1. ROCEPHIN [Suspect]
     Indication: PNEUMONIA BACTERIAL
     Route: 065
  2. ACETAMINOPHEN [Suspect]
     Indication: PNEUMONIA BACTERIAL
     Route: 048
  3. CLARITHROMYCIN [Concomitant]
     Route: 048

REACTIONS (1)
  - EOSINOPHILIC PNEUMONIA [None]
